FAERS Safety Report 9997653 (Version 1)
Quarter: 2014Q1

REPORT INFORMATION
  Report Type: Report from Study
  Country: DE (occurrence: DE)
  Receive Date: 20140311
  Receipt Date: 20140311
  Transmission Date: 20141002
  Serious: No
  Sender: FDA-Public Use
  Company Number: PHHY2014DE029678

PATIENT
  Sex: Female

DRUGS (9)
  1. AMN107 [Suspect]
     Indication: CHRONIC MYELOID LEUKAEMIA
     Dosage: 800 MG, UNK
     Dates: start: 20120522, end: 20120525
  2. AMN107 [Suspect]
     Dosage: 600 MG, UNK
     Dates: start: 20120526, end: 20120618
  3. AMN107 [Suspect]
     Dosage: 600 MG, UNK
     Dates: start: 20120625
  4. BISOPROLOL [Concomitant]
     Dosage: 5 MG, UNK
  5. JODTHYROX [Concomitant]
     Dosage: UNK
     Dates: start: 2008
  6. VOTUM [Concomitant]
     Dosage: 10 MG, UNK
  7. ASS [Concomitant]
     Dosage: 100 MG, UNK
  8. ALLOPURINOL [Concomitant]
     Dosage: 300 MG, UNK
     Dates: start: 20120509, end: 20120724
  9. MARCUMAR [Concomitant]
     Dosage: UNK
     Dates: start: 201206

REACTIONS (1)
  - Diarrhoea [Recovered/Resolved]
